FAERS Safety Report 6258503-3 (Version None)
Quarter: 2009Q3

REPORT INFORMATION
  Report Type: 
  Country: None (occurrence: None)
  Receive Date: 20090707
  Receipt Date: 20090626
  Transmission Date: 20100115
  Serious: Yes (Hospitalization)
  Sender: FDA-Public Use
  Company Number: FR-AVENTIS-200912373FR

PATIENT
  Age: 51 Year
  Sex: Female

DRUGS (8)
  1. BIRODOGYL [Suspect]
     Route: 048
     Dates: start: 20090401, end: 20090403
  2. AUGMENTIN '125' [Suspect]
     Indication: WOUND INFECTION
     Route: 048
     Dates: start: 20090407, end: 20090410
  3. FUCIDINE                           /00065702/ [Suspect]
     Indication: SKIN LESION
     Route: 061
     Dates: start: 20090401, end: 20090407
  4. LACTEOL                            /00079701/ [Suspect]
     Route: 048
     Dates: start: 20090408, end: 20090410
  5. ULTRA-LEVURE                       /00838001/ [Suspect]
     Route: 048
     Dates: start: 20090408, end: 20090410
  6. TRIFLUCAN [Suspect]
     Route: 048
     Dates: start: 20090408, end: 20090410
  7. COAPROVEL [Concomitant]
  8. FIVASA [Concomitant]

REACTIONS (4)
  - AGRANULOCYTOSIS [None]
  - HYPERTHERMIA [None]
  - LEUKOPENIA [None]
  - NEUTROPENIA [None]
